FAERS Safety Report 23043127 (Version 1)
Quarter: 2023Q4

REPORT INFORMATION
  Report Type: Spontaneous
  Country: CN (occurrence: CN)
  Receive Date: 20231009
  Receipt Date: 20231009
  Transmission Date: 20240109
  Serious: Yes (Hospitalization)
  Sender: FDA-Public Use
  Company Number: CN-BAT-2023BAT000304

PATIENT
  Age: 14 Year
  Sex: Female
  Weight: 40.0 kg

DRUGS (1)
  1. TOFIDENCE [Suspect]
     Active Substance: TOCILIZUMAB-BAVI
     Indication: Rheumatoid factor positive
     Dosage: ONE SINGLE DOSE
     Route: 041
     Dates: start: 20230926, end: 20230926

REACTIONS (1)
  - Abdominal pain [Recovering/Resolving]

NARRATIVE: CASE EVENT DATE: 20230926
